FAERS Safety Report 14302362 (Version 1)
Quarter: 2017Q4

REPORT INFORMATION
  Report Type: Spontaneous
  Country: US (occurrence: US)
  Receive Date: 20171219
  Receipt Date: 20171219
  Transmission Date: 20180321
  Serious: No
  Sender: FDA-Public Use
  Company Number: US-SUPERNUS PHARMACEUTICALS, INC.-2017SUP00068

PATIENT
  Age: 58 Year
  Sex: Female
  Weight: 89.8 kg

DRUGS (3)
  1. TROKENDI XR [Suspect]
     Active Substance: TOPIRAMATE
     Indication: BIPOLAR DISORDER
     Dosage: 50 MG, 1X/DAY
     Route: 048
     Dates: start: 201607, end: 2016
  2. VRAYLAR [Concomitant]
     Active Substance: CARIPRAZINE
     Dosage: 4.5 MG, 1X/DAY AT BEDTIME
     Route: 048
     Dates: start: 201607
  3. TROKENDI XR [Suspect]
     Active Substance: TOPIRAMATE
     Indication: BIPOLAR DISORDER
     Dosage: 100 MG, 1X/DAY
     Route: 048
     Dates: start: 2016

REACTIONS (3)
  - Weight decreased [Not Recovered/Not Resolved]
  - Off label use [Unknown]
  - Early satiety [Not Recovered/Not Resolved]

NARRATIVE: CASE EVENT DATE: 201609
